FAERS Safety Report 10243039 (Version 1)
Quarter: 2014Q2

REPORT INFORMATION
  Report Type: Spontaneous
  Country: US (occurrence: None)
  Receive Date: 20140613
  Receipt Date: 20140613
  Transmission Date: 20141212
  Serious: Yes (Other)
  Sender: FDA-Public Use
  Company Number: 2014US0247

PATIENT
  Age: 44 Year
  Sex: Female

DRUGS (4)
  1. KINERET [Suspect]
     Indication: RHEUMATOID ARTHRITIS
     Route: 058
     Dates: start: 2009
  2. CELEBREX (CELECOXIB) (CELECOXIB) [Concomitant]
  3. PAROXETINE (PAROXETINE) (PAROXETINE) [Concomitant]
  4. CARISOPRODOL (CARISOPRODOL) (CARISOPRODOL) [Concomitant]

REACTIONS (1)
  - Carpal tunnel syndrome [None]
